FAERS Safety Report 21290062 (Version 1)
Quarter: 2022Q3

REPORT INFORMATION
  Report Type: Report from Study
  Country: US (occurrence: US)
  Receive Date: 20220902
  Receipt Date: 20220902
  Transmission Date: 20221027
  Serious: Yes (Other)
  Sender: FDA-Public Use
  Company Number: US-BRISTOL-MYERS SQUIBB COMPANY-2022-068816

PATIENT
  Age: 66 Year
  Sex: Male
  Weight: 88.45 kg

DRUGS (1)
  1. REVLIMID [Suspect]
     Active Substance: LENALIDOMIDE
     Indication: Plasma cell myeloma
     Dosage: FREQ:ONCE DAILY FOR 21 DAYS OUT OF 28 DAYS
     Route: 048

REACTIONS (4)
  - Bronchitis [Unknown]
  - Asthenia [Unknown]
  - Fatigue [Unknown]
  - Prostate cancer [Unknown]
